FAERS Safety Report 6760800-X (Version None)
Quarter: 2010Q2

REPORT INFORMATION
  Report Type: 
  Country: None (occurrence: None)
  Receive Date: 20100607
  Receipt Date: 20100607
  Transmission Date: 20101027
  Serious: Yes (Other)
  Sender: FDA-Public Use
  Company Number: None

PATIENT
  Sex: Female
  Weight: 56.6996 kg

DRUGS (1)
  1. MIRENA [Suspect]
     Indication: INTRA-UTERINE CONTRACEPTIVE DEVICE
     Dates: start: 20050201, end: 20100202

REACTIONS (11)
  - ACNE [None]
  - ANGER [None]
  - ANHEDONIA [None]
  - ARTHRALGIA [None]
  - DEPRESSION [None]
  - LOSS OF LIBIDO [None]
  - MANIA [None]
  - MEMORY IMPAIRMENT [None]
  - MOOD ALTERED [None]
  - PARTNER STRESS [None]
  - WEIGHT INCREASED [None]
